FAERS Safety Report 6188804-9 (Version None)
Quarter: 2009Q2

REPORT INFORMATION
  Report Type: 
  Country: None (occurrence: None)
  Receive Date: 20090513
  Receipt Date: 20090429
  Transmission Date: 20091009
  Serious: Yes (Hospitalization, Other)
  Sender: FDA-Public Use
  Company Number: US-PFIZER INC-2004225585US

PATIENT
  Sex: Female

DRUGS (5)
  1. PROVERA [Suspect]
     Indication: HORMONE REPLACEMENT THERAPY
     Dosage: UNK
     Route: 048
     Dates: start: 19880101, end: 19970101
  2. PREMARIN [Suspect]
     Indication: HORMONE REPLACEMENT THERAPY
     Dosage: UNK
     Dates: start: 19880101, end: 19970101
  3. PREMPRO [Suspect]
     Indication: HORMONE REPLACEMENT THERAPY
     Dates: start: 19880101, end: 19970801
  4. ESTRACE [Suspect]
     Indication: HORMONE REPLACEMENT THERAPY
     Dosage: UNK
     Dates: start: 19950101, end: 19970101
  5. BEXTRA [Concomitant]
     Indication: ARTHRITIS
     Dosage: UNK
     Dates: start: 19960101, end: 20040101

REACTIONS (9)
  - ANXIETY [None]
  - BLOOD TRIGLYCERIDES INCREASED [None]
  - BREAST CANCER [None]
  - CARDIAC FAILURE CONGESTIVE [None]
  - DEPRESSION [None]
  - HEART RATE IRREGULAR [None]
  - LOW DENSITY LIPOPROTEIN INCREASED [None]
  - MYOCARDIAL INFARCTION [None]
  - PAIN [None]
